FAERS Safety Report 5381492-0 (Version None)
Quarter: 2007Q3

REPORT INFORMATION
  Report Type: 
  Country: None (occurrence: None)
  Receive Date: 20070705
  Receipt Date: 20070705
  Transmission Date: 20080115
  Serious: Yes (Other)
  Sender: FDA-Public Use
  Company Number: None

PATIENT
  Sex: Male
  Weight: 22.6799 kg

DRUGS (2)
  1. BUPROPION HCL [Suspect]
     Dosage: 1 QAM PO
     Route: 048
     Dates: start: 20070316
  2. BUPROPION HCL [Suspect]
     Dosage: 1 QAM PO
     Route: 048
     Dates: start: 20070327

REACTIONS (5)
  - AFFECTIVE DISORDER [None]
  - IRRITABILITY [None]
  - MOOD ALTERED [None]
  - PARANOIA [None]
  - THERAPEUTIC RESPONSE UNEXPECTED [None]
